FAERS Safety Report 4906299-7 (Version None)
Quarter: 2006Q1

REPORT INFORMATION
  Report Type: 
  Country: None (occurrence: None)
  Receive Date: 20060206
  Receipt Date: 20060122
  Transmission Date: 20060701
  Serious: Yes (Death, Hospitalization)
  Sender: FDA-Public Use
  Company Number: 219793

PATIENT
  Age: 49 Year
  Sex: Female

DRUGS (6)
  1. HERCEPTIN (TRASTUZUMAB)PWDR + SOLVENT, INFUSION SOLN, 440 MG [Suspect]
     Indication: BREAST CANCER
     Dosage: 8 MG/KG, SINGLE, INTRAVENOUS; 6 MG/KG, SINGLE
     Route: 042
     Dates: start: 20051014
  2. HERCEPTIN (TRASTUZUMAB)PWDR + SOLVENT, INFUSION SOLN, 440 MG [Suspect]
     Indication: BREAST CANCER
     Dosage: 8 MG/KG, SINGLE, INTRAVENOUS; 6 MG/KG, SINGLE
     Route: 042
     Dates: start: 20051104
  3. ZANTAC [Concomitant]
  4. DEMEROL [Concomitant]
  5. ANASTROZOLE (ANASTROZOLE) [Concomitant]
  6. DEXAMETHASONE [Concomitant]

REACTIONS (10)
  - CHILLS [None]
  - DIALYSIS [None]
  - DYSPEPSIA [None]
  - DYSPNOEA [None]
  - HEPATIC FAILURE [None]
  - METASTASES TO LIVER [None]
  - MYOCARDIAL INFARCTION [None]
  - RENAL FAILURE [None]
  - RETROPERITONEAL HAEMORRHAGE [None]
  - TUMOUR LYSIS SYNDROME [None]
